FAERS Safety Report 5878854-1 (Version None)
Quarter: 2008Q3

REPORT INFORMATION
  Report Type: 
  Country: None (occurrence: None)
  Receive Date: 20080912
  Receipt Date: 20080910
  Transmission Date: 20090109
  Serious: Yes (Hospitalization)
  Sender: FDA-Public Use
  Company Number: BR-ABBOTT-08P-020-0465913-00

PATIENT
  Sex: Female

DRUGS (6)
  1. HUMIRA [Suspect]
     Indication: RHEUMATOID ARTHRITIS
     Route: 058
     Dates: start: 20071020
  2. LEFLUNOMIDE [Interacting]
     Indication: DRUG USE FOR UNKNOWN INDICATION
  3. SULFASALAZINE [Interacting]
     Indication: DRUG USE FOR UNKNOWN INDICATION
  4. SULFASALAZINE [Interacting]
  5. PREDNISONE TAB [Concomitant]
     Indication: DRUG USE FOR UNKNOWN INDICATION
  6. METHOTREXATE [Concomitant]
     Indication: DRUG USE FOR UNKNOWN INDICATION

REACTIONS (2)
  - DRUG INTERACTION [None]
  - RED BLOOD CELL COUNT DECREASED [None]
